FAERS Safety Report 19488600 (Version 2)
Quarter: 2021Q3

REPORT INFORMATION
  Report Type: Spontaneous
  Country: US (occurrence: US)
  Receive Date: 20210702
  Receipt Date: 20210730
  Transmission Date: 20211014
  Serious: Yes (Life-Threatening, Other)
  Sender: FDA-Public Use
  Company Number: US-PFIZER INC-2021757905

PATIENT
  Age: 20 Year
  Sex: Female
  Weight: 51 kg

DRUGS (1)
  1. DEPO?PROVERA [Suspect]
     Active Substance: MEDROXYPROGESTERONE ACETATE
     Indication: CONTRACEPTION
     Dosage: 150 MG
     Route: 030
     Dates: start: 20210221, end: 20210523

REACTIONS (5)
  - Paraesthesia oral [Unknown]
  - Anaphylactic reaction [Unknown]
  - Paraesthesia [Unknown]
  - Chest pain [Unknown]
  - Erythema [Unknown]

NARRATIVE: CASE EVENT DATE: 20210523
